FAERS Safety Report 8786224 (Version 4)
Quarter: 2013Q1

REPORT INFORMATION
  Report Type: Spontaneous
  Country: US (occurrence: US)
  Receive Date: 20120914
  Receipt Date: 20130304
  Transmission Date: 20140127
  Serious: Yes (Hospitalization, Other)
  Sender: FDA-Public Use
  Company Number: PHEH2012US017589

PATIENT
  Sex: Male

DRUGS (4)
  1. EXTAVIA [Suspect]
     Indication: MULTIPLE SCLEROSIS
     Dosage: 0.25 MG, QOD
     Route: 058
     Dates: start: 20100330
  2. EXTAVIA [Suspect]
     Dosage: 1 ML, QOD
     Route: 058
  3. BACLOFEN [Concomitant]
  4. IBUPROFEN [Concomitant]

REACTIONS (12)
  - Spinal column stenosis [Unknown]
  - Nerve compression [Recovering/Resolving]
  - Pain [Unknown]
  - Hypoaesthesia [Unknown]
  - Sensation of heaviness [Unknown]
  - Condition aggravated [Unknown]
  - Arthralgia [Unknown]
  - Asthenia [Unknown]
  - Pyrexia [Unknown]
  - Myalgia [Unknown]
  - Headache [Unknown]
  - Injection site pain [Unknown]
